FAERS Safety Report 5810873-3 (Version None)
Quarter: 2008Q3

REPORT INFORMATION
  Report Type: 
  Country: None (occurrence: None)
  Receive Date: 20080716
  Receipt Date: 20080714
  Transmission Date: 20090109
  Serious: Yes (Other)
  Sender: FDA-Public Use
  Company Number: FR-RB-002464-08

PATIENT
  Age: 28 Year
  Sex: Female

DRUGS (1)
  1. SUBUTEX [Suspect]
     Dosage: UNKNOWN DOSING INFORMATION.
     Route: 042

REACTIONS (4)
  - DRUG EXPOSURE DURING PREGNANCY [None]
  - STAPHYLOCOCCAL INFECTION [None]
  - SUBCUTANEOUS ABSCESS [None]
  - SUBSTANCE ABUSE [None]
